FAERS Safety Report 4519875-0 (Version None)
Quarter: 2004Q4

REPORT INFORMATION
  Report Type: 
  Country: None (occurrence: None)
  Receive Date: 20041202
  Receipt Date: 20041202
  Transmission Date: 20050328
  Serious: Yes (Death, Hospitalization)
  Sender: FDA-Public Use
  Company Number: None

PATIENT
  Age: 32 Year
  Sex: Female
  Weight: 80.7 kg

DRUGS (7)
  1. CARBOPLATIN [Suspect]
     Indication: THYMOMA
     Dosage: AUC = 6.0 Q3 WKS INTRAVENOUS
     Route: 042
     Dates: start: 20040720, end: 20040812
  2. PACLITAXEL [Suspect]
     Indication: THYMOMA
     Dosage: 225 MG/M2 Q3 WKS INTRAVENOUS
     Route: 042
     Dates: start: 20040720, end: 20040812
  3. PREDNISONE TAB [Concomitant]
  4. COUMADIN [Concomitant]
  5. CELEBREX [Concomitant]
  6. TYLENOL (CAPLET) [Concomitant]
  7. ORTHO-NOVUM [Concomitant]

REACTIONS (11)
  - BLOOD CREATINE PHOSPHOKINASE INCREASED [None]
  - CARDIOMYOPATHY [None]
  - FATIGUE [None]
  - GENERAL PHYSICAL HEALTH DETERIORATION [None]
  - LIVER FUNCTION TEST ABNORMAL [None]
  - MYALGIA [None]
  - PHARYNGOLARYNGEAL PAIN [None]
  - PYREXIA [None]
  - RESPIRATORY DISTRESS [None]
  - RHABDOMYOLYSIS [None]
  - SEPSIS [None]
